FAERS Safety Report 13646383 (Version 1)
Quarter: 2017Q2

REPORT INFORMATION
  Report Type: Report from Study
  Country: US (occurrence: US)
  Receive Date: 20170613
  Receipt Date: 20170613
  Transmission Date: 20170830
  Serious: Yes (Other)
  Sender: FDA-Public Use
  Company Number: US-AMGEN-USASL2017087069

PATIENT
  Age: 60 Year
  Sex: Female

DRUGS (3)
  1. ENBREL [Suspect]
     Active Substance: ETANERCEPT
     Indication: RHEUMATOID ARTHRITIS
     Dosage: 50 MG, QWK
     Route: 065
     Dates: start: 2011
  2. ENBREL [Suspect]
     Active Substance: ETANERCEPT
     Dosage: 50 MG, QWK
     Route: 065
  3. RESTASIS [Concomitant]
     Active Substance: CYCLOSPORINE
     Dosage: UNK

REACTIONS (15)
  - Injection site reaction [Unknown]
  - Incorrect product storage [Unknown]
  - Inflammatory bowel disease [Recovering/Resolving]
  - Thyroid disorder [Unknown]
  - Raynaud^s phenomenon [Unknown]
  - Malaise [Recovered/Resolved]
  - Spinal operation [Unknown]
  - Influenza [Recovered/Resolved]
  - Sjogren^s syndrome [Unknown]
  - Lymphadenopathy [Unknown]
  - Osteoarthritis [Unknown]
  - Drug prescribing error [Unknown]
  - Sinusitis [Recovered/Resolved]
  - Irritable bowel syndrome [Recovering/Resolving]
  - Injection site pain [Unknown]
